FAERS Safety Report 12958917 (Version 1)
Quarter: 2016Q4

REPORT INFORMATION
  Report Type: Spontaneous
  Country: US (occurrence: US)
  Receive Date: 20161117
  Receipt Date: 20161117
  Transmission Date: 20170207
  Serious: Yes (Hospitalization)
  Sender: FDA-Public Use
  Company Number: None

PATIENT
  Age: 59 Year
  Sex: Female

DRUGS (12)
  1. FLUTICASONE AND SALMETAROL [Concomitant]
  2. WARFARIN [Suspect]
     Active Substance: WARFARIN
     Indication: AORTIC VALVE REPLACEMENT
     Dosage: 5-7.5MG DAILY PO
     Route: 048
     Dates: start: 20160913
  3. ALBUTEROL. [Concomitant]
     Active Substance: ALBUTEROL
  4. NICOTINE. [Concomitant]
     Active Substance: NICOTINE
  5. ASPIRIN. [Suspect]
     Active Substance: ASPIRIN
     Route: 048
  6. LANSOPRAZOLE. [Concomitant]
     Active Substance: LANSOPRAZOLE
  7. LISINOPRIL. [Concomitant]
     Active Substance: LISINOPRIL
  8. ROSUVASTATIN. [Concomitant]
     Active Substance: ROSUVASTATIN
  9. FERROUS SULFATE. [Concomitant]
     Active Substance: FERROUS SULFATE
  10. AMLODIPINE [Concomitant]
     Active Substance: AMLODIPINE BESYLATE
  11. ASPIRIN. [Concomitant]
     Active Substance: ASPIRIN
  12. PANTOPRAZOLE [Concomitant]
     Active Substance: PANTOPRAZOLE SODIUM

REACTIONS (5)
  - Melaena [None]
  - International normalised ratio increased [None]
  - Refusal of treatment by patient [None]
  - Incorrect dose administered [None]
  - Contraindicated product administered [None]

NARRATIVE: CASE EVENT DATE: 20160913
